FAERS Safety Report 25631988 (Version 1)
Quarter: 2025Q3

REPORT INFORMATION
  Report Type: Spontaneous
  Country: US (occurrence: US)
  Receive Date: 20250801
  Receipt Date: 20250801
  Transmission Date: 20251020
  Serious: Yes (Other)
  Sender: SANOFI AVENTIS
  Company Number: US-SA-2025SA222155

PATIENT
  Age: 70 Year
  Sex: Male

DRUGS (1)
  1. DUPIXENT [Suspect]
     Active Substance: DUPILUMAB
     Dosage: 300 MG, QOW
     Route: 058

REACTIONS (5)
  - Photokeratitis [Unknown]
  - Photophobia [Unknown]
  - Intraocular pressure test abnormal [Unknown]
  - Condition aggravated [Unknown]
  - Dizziness [Unknown]
